FAERS Safety Report 6015750 (Version 1)
Quarter: 2020Q3

REPORT INFORMATION
  Report Type: Report from Study
  Country: DE (occurrence: DE)
  Receive Date: 20060330
  Receipt Date: 20060330
  Transmission Date: 20201104
  Serious: Yes (Hospitalization)
  Sender: FDA-Public Use
  Company Number: DE-JNJFOC-20031006642

PATIENT
  Age: 67 Year
  Sex: Male

DRUGS (15)
  1. PLACEBO [Suspect]
     Active Substance: UNSPECIFIED INGREDIENT
     Indication: CACHEXIA
     Route: 042
  2. POTASSIUM CITRATE. [Concomitant]
     Active Substance: POTASSIUM CITRATE
     Route: 048
     Dates: start: 20030816, end: 20030822
  3. TRAMADOL HYDROCHLORIDE. [Concomitant]
     Active Substance: TRAMADOL HYDROCHLORIDE
     Route: 048
  4. PLACEBO [Suspect]
     Active Substance: UNSPECIFIED INGREDIENT
     Indication: CACHEXIA
     Route: 042
  5. VITAMIN B COMPLEX [Concomitant]
     Active Substance: CYANOCOBALAMIN\DEXPANTHENOL\NIACINAMIDE\PYRIDOXINE HYDROCHLORIDE\RIBOFLAVIN 5^-PHOSPHATE SODIUM\THIAMINE HYDROCHLORIDE\VITAMIN B COMPLEX
     Route: 048
     Dates: start: 20030808, end: 20031024
  6. NOVALGIN (METAMIZOLE SODIUM) [Concomitant]
     Active Substance: METAMIZOLE SODIUM
  7. POTASSIUM CARBONATE [Concomitant]
     Active Substance: POTASSIUM CARBONATE
     Route: 048
     Dates: start: 20030816, end: 20030822
  8. METOCLOPRAMIDE HYDROCHLORIDE. [Concomitant]
     Active Substance: METOCLOPRAMIDE HYDROCHLORIDE
     Route: 048
  9. GEMCITABINE. [Concomitant]
     Active Substance: GEMCITABINE
     Route: 042
  10. AMARYL [Concomitant]
     Active Substance: GLIMEPIRIDE
  11. INFLIXIMAB [Suspect]
     Active Substance: INFLIXIMAB
     Indication: CACHEXIA
     Route: 042
  12. VERAPAMIL HYDROCHLORIDE. [Concomitant]
     Active Substance: VERAPAMIL HYDROCHLORIDE
  13. CAPTOPRIL. [Concomitant]
     Active Substance: CAPTOPRIL
  14. PLACEBO [Suspect]
     Active Substance: UNSPECIFIED INGREDIENT
     Indication: CACHEXIA
     Route: 042
  15. INH [Concomitant]
     Active Substance: ISONIAZID
     Route: 048
     Dates: start: 20030808, end: 20031024

REACTIONS (7)
  - Cholangitis [Recovered/Resolved]
  - Supraventricular tachycardia [Recovered/Resolved]
  - Hypokalaemia [Recovered/Resolved]
  - Atrial fibrillation [Recovered/Resolved]
  - Blood bilirubin increased [Not Recovered/Not Resolved]
  - Pyrexia [Recovered/Resolved]
  - Pain [Not Recovered/Not Resolved]

NARRATIVE: CASE EVENT DATE: 20031001
